FAERS Safety Report 8934948 (Version 2)
Quarter: 2012Q4

REPORT INFORMATION
  Report Type: 
  Country: JP (occurrence: JP)
  Receive Date: 20121129
  Receipt Date: 20121214
  Transmission Date: 20130627
  Serious: Yes (Other)
  Sender: FDA-Public Use
  Company Number: JP-BAXTER-2012BAX025457

PATIENT
  Sex: Female

DRUGS (5)
  1. ENDOXAN [Suspect]
     Indication: DRUG EXPOSURE VIA MOTHER
     Route: 064
  2. RITUXIMAB [Suspect]
     Indication: DRUG EXPOSURE VIA MOTHER
     Route: 064
  3. PREDNISOLONE [Suspect]
     Indication: DRUG EXPOSURE VIA MOTHER
     Route: 064
  4. ADRIAMYCIN [Suspect]
     Indication: DRUG EXPOSURE VIA MOTHER
     Route: 064
  5. VINCRISTINE [Suspect]
     Indication: DRUG EXPOSURE VIA MOTHER
     Route: 064

REACTIONS (3)
  - B-lymphocyte count decreased [Recovered/Resolved]
  - Foetal exposure during pregnancy [Recovered/Resolved]
  - Maternal drugs affecting foetus [None]
